FAERS Safety Report 23649218 (Version 1)
Quarter: 2024Q1

REPORT INFORMATION
  Report Type: Spontaneous
  Country: CN (occurrence: CN)
  Receive Date: 20240319
  Receipt Date: 20240319
  Transmission Date: 20240410
  Serious: Yes (Life-Threatening, Hospitalization, Disabling, Other)
  Sender: FDA-Public Use
  Company Number: CN-PFIZER INC-PV202400036126

PATIENT
  Age: 75 Year
  Sex: Male
  Weight: 65 kg

DRUGS (2)
  1. DALTEPARIN SODIUM [Suspect]
     Active Substance: DALTEPARIN SODIUM
     Dosage: UNK
  2. DAPAGLIFLOZIN [Suspect]
     Active Substance: DAPAGLIFLOZIN
     Indication: Type 2 diabetes mellitus
     Dosage: 10 MG, 1X/DAY
     Route: 048
     Dates: start: 20231001, end: 20240212

REACTIONS (14)
  - Blood ketone body increased [Recovering/Resolving]
  - Genital erythema [Not Recovered/Not Resolved]
  - Genital pain [Not Recovered/Not Resolved]
  - Pruritus genital [Not Recovered/Not Resolved]
  - Skin wound [Not Recovered/Not Resolved]
  - Skin haemorrhage [Not Recovered/Not Resolved]
  - Blood glucose fluctuation [Unknown]
  - Nausea [Unknown]
  - Haematemesis [Unknown]
  - Asthenia [Unknown]
  - Decreased appetite [Unknown]
  - Melaena [Unknown]
  - Abdominal pain [Unknown]
  - Listless [Unknown]

NARRATIVE: CASE EVENT DATE: 20240212
